FAERS Safety Report 12256806 (Version 1)
Quarter: 2016Q2

REPORT INFORMATION
  Report Type: Spontaneous
  Country: US (occurrence: US)
  Receive Date: 20160412
  Receipt Date: 20160412
  Transmission Date: 20160815
  Serious: No
  Sender: FDA-Public Use
  Company Number: US-GLAXOSMITHKLINE-US2016046826

PATIENT
  Age: 71 Year
  Sex: Female

DRUGS (1)
  1. FLONASE [Suspect]
     Active Substance: FLUTICASONE PROPIONATE
     Indication: UPPER-AIRWAY COUGH SYNDROME
     Dosage: UNK

REACTIONS (5)
  - Increased upper airway secretion [Not Recovered/Not Resolved]
  - Epistaxis [Recovered/Resolved]
  - Product use issue [Unknown]
  - Nasal crusting [Not Recovered/Not Resolved]
  - Rhinorrhoea [Not Recovered/Not Resolved]
